FAERS Safety Report 17692213 (Version 3)
Quarter: 2020Q3

REPORT INFORMATION
  Report Type: Report from Study
  Country: US (occurrence: US)
  Receive Date: 20200422
  Receipt Date: 20200723
  Transmission Date: 20201102
  Serious: Yes (Hospitalization)
  Sender: FDA-Public Use
  Company Number: NVSC2020US105153

PATIENT
  Age: 34 Year
  Sex: Female
  Weight: 82 kg

DRUGS (5)
  1. ENCORAFENIB [Concomitant]
     Active Substance: ENCORAFENIB
     Indication: TARGETED CANCER THERAPY
     Dosage: UNK
     Route: 065
     Dates: start: 20200506
  2. TRAMETINIB [Suspect]
     Active Substance: TRAMETINIB
     Indication: MALIGNANT MELANOMA
     Dosage: 2 MG, QD
     Route: 048
     Dates: start: 20191219, end: 20200407
  3. GSK2118436 [Suspect]
     Active Substance: DABRAFENIB
     Indication: MALIGNANT MELANOMA
     Dosage: 150 MG, BID
     Route: 048
     Dates: start: 20191219, end: 20200407
  4. TYLENOL [Concomitant]
     Active Substance: ACETAMINOPHEN
     Indication: PAIN
     Dosage: UNK
     Route: 065
  5. BINIMETINIB [Concomitant]
     Active Substance: BINIMETINIB
     Indication: TARGETED CANCER THERAPY
     Dosage: UNK
     Route: 065
     Dates: start: 20200506

REACTIONS (3)
  - Alanine aminotransferase increased [Not Recovered/Not Resolved]
  - Hepatic failure [Recovered/Resolved]
  - Blood bilirubin increased [Recovered/Resolved]

NARRATIVE: CASE EVENT DATE: 20200406
